FAERS Safety Report 9520344 (Version 3)
Quarter: 2013Q4

REPORT INFORMATION
  Report Type: Report from Study
  Country: US (occurrence: US)
  Receive Date: 20130912
  Receipt Date: 20131002
  Transmission Date: 20140711
  Serious: Yes (Hospitalization)
  Sender: FDA-Public Use
  Company Number: PHHO2013US011647

PATIENT
  Age: 60 Year
  Sex: Female
  Weight: 49.5 kg

DRUGS (8)
  1. PACLITAXEL [Suspect]
     Indication: BREAST CANCER
     Dosage: 114 MG, UNK
     Route: 048
     Dates: start: 20130626, end: 20130927
  2. LCL161 [Suspect]
     Indication: BREAST CANCER
     Dosage: 1800 MG, UNK
     Route: 048
     Dates: start: 20130626
  3. ATIVAN [Concomitant]
     Dosage: 1 TAB Q 4 HRS
     Route: 048
  4. VALIUM [Concomitant]
     Dosage: Q 6 HRS PRN
     Route: 048
  5. BENADRYL [Concomitant]
     Dosage: 25 MG, Q BEFORE BED PRN
  6. ZOFRAN [Concomitant]
     Dosage: 4 MG, Q 6 HRS
     Route: 048
  7. TOPROL XL [Concomitant]
     Dosage: 25 MG, QD
     Route: 048
  8. LEVAQUIN [Concomitant]
     Dosage: 750 MG, QD
     Route: 048

REACTIONS (2)
  - Hyponatraemia [Recovering/Resolving]
  - Neutropenia [Recovered/Resolved]
